FAERS Safety Report 24814990 (Version 1)
Quarter: 2025Q1

REPORT INFORMATION
  Report Type: Spontaneous
  Country: CA (occurrence: CA)
  Receive Date: 20250107
  Receipt Date: 20250107
  Transmission Date: 20250409
  Serious: Yes (Other)
  Sender: BAYER HEALTHCARE PHARMACEUTICALS INC.
  Company Number: CA-BAYER-2025A002166

PATIENT
  Age: 50 Year
  Sex: Female

DRUGS (1)
  1. GADOBUTROL [Suspect]
     Active Substance: GADOBUTROL
     Indication: Scan

REACTIONS (4)
  - Hypersensitivity [Unknown]
  - Paraesthesia [Unknown]
  - Eye pain [Unknown]
  - Eye swelling [Unknown]
